FAERS Safety Report 8778345 (Version 2)
Quarter: 2012Q4

REPORT INFORMATION
  Report Type: 
  Country: GB (occurrence: GB)
  Receive Date: 20120911
  Receipt Date: 20120925
  Transmission Date: 20130627
  Serious: Yes (Hospitalization, Other)
  Sender: FDA-Public Use
  Company Number: GB-AMGEN-GBRSP2012056804

PATIENT
  Age: 69 Year
  Sex: Male
  Weight: 71.5 kg

DRUGS (6)
  1. NEULASTA [Suspect]
     Indication: NEUTROPENIA
     Dosage: 6 mg, one time dose
     Route: 058
     Dates: start: 20120906, end: 20120906
  2. PEMETREXED [Concomitant]
     Indication: LUNG NEOPLASM MALIGNANT
     Dosage: 900 mg, UNK
     Route: 042
     Dates: start: 20120905
  3. DOMPERIDONE [Concomitant]
     Indication: ANTIEMETIC SUPPORTIVE CARE
     Dosage: 20 mg, qd
     Route: 048
     Dates: start: 20120905
  4. DEXAMETHASONE [Concomitant]
     Indication: ANTIEMETIC SUPPORTIVE CARE
     Dosage: 4 mg, bid
     Route: 048
     Dates: start: 20120905
  5. FOLIC ACID [Concomitant]
     Dosage: 400 mg, qd
     Route: 048
     Dates: start: 20120905
  6. CIPROFLOXACIN [Concomitant]
     Dosage: 500 mg, bid
     Route: 048
     Dates: start: 20120905

REACTIONS (7)
  - Swelling face [Recovered/Resolved]
  - Glossitis [Recovered/Resolved]
  - Dyspnoea [Recovered/Resolved]
  - Malaise [Recovered/Resolved]
  - Flushing [Recovered/Resolved]
  - Fall [Unknown]
  - Anaphylactic reaction [Recovered/Resolved]
